FAERS Safety Report 7893491-5 (Version None)
Quarter: 2011Q4

REPORT INFORMATION
  Report Type: 
  Country: None (occurrence: None)
  Receive Date: 20111104
  Receipt Date: 20111101
  Transmission Date: 20120403
  Serious: Yes (Life-Threatening, Hospitalization)
  Sender: FDA-Public Use
  Company Number: RO-ABBOTT-11P-135-0868767-00

PATIENT
  Sex: Male
  Weight: 60 kg

DRUGS (10)
  1. BISOPROLOL [Concomitant]
     Indication: HYPERTENSION
     Route: 048
  2. BISOPROLOL [Concomitant]
     Indication: MYOCARDIAL ISCHAEMIA
  3. NEOROCORMON (BETA ERYTHROPOIETIN) [Concomitant]
     Indication: NEPHROGENIC ANAEMIA
     Route: 058
     Dates: start: 20100101
  4. TEMISARTAN [Concomitant]
     Indication: HYPERTENSION
     Route: 048
     Dates: start: 20050101
  5. SIMVASTATIN [Concomitant]
     Indication: DYSLIPIDAEMIA
     Route: 048
  6. ATORVASTATIN [Concomitant]
     Indication: PRODUCT USED FOR UNKNOWN INDICATION
  7. SIMVASTATIN [Concomitant]
     Indication: MYOCARDIAL ISCHAEMIA
  8. AMLODIPINA [Concomitant]
     Indication: HYPERTENSION
     Route: 048
     Dates: start: 20050101
  9. ZEMPLAR [Suspect]
     Indication: HYPERPARATHYROIDISM SECONDARY
     Route: 048
     Dates: start: 20110620
  10. TEMISARTAN [Concomitant]
     Indication: HYPERTENSIVE CARDIOMYOPATHY

REACTIONS (2)
  - MYOCARDIAL INFARCTION [None]
  - ANGINA PECTORIS [None]
